FAERS Safety Report 16121876 (Version 1)
Quarter: 2019Q1

REPORT INFORMATION
  Report Type: Other
  Country: DE (occurrence: DE)
  Receive Date: 20190327
  Receipt Date: 20190327
  Transmission Date: 20190418
  Serious: Yes (Hospitalization)
  Sender: FDA-Public Use
  Company Number: DE-CELLTRION INC.-2019DE019630

PATIENT

DRUGS (6)
  1. PREDNISOLON [Concomitant]
     Active Substance: PREDNISOLONE
  2. ALENDRONIC ACID [Concomitant]
     Active Substance: ALENDRONIC ACID
  3. RITUXIMAB (UNKNOWN) [Suspect]
     Active Substance: RITUXIMAB
     Indication: RHEUMATOID ARTHRITIS
     Dosage: 1000 MG
     Route: 065
  4. VIGANTOLETTEN [Concomitant]
     Active Substance: CHOLECALCIFEROL
  5. L-THYROXIN [Concomitant]
     Active Substance: LEVOTHYROXINE SODIUM
  6. METHOTREXATE. [Suspect]
     Active Substance: METHOTREXATE
     Indication: RHEUMATOID ARTHRITIS
     Dosage: 20 MG
     Route: 065

REACTIONS (6)
  - Staphylococcus test positive [Unknown]
  - Polyarthritis [Unknown]
  - Diverticulitis [Recovered/Resolved]
  - Diarrhoea [Unknown]
  - Osteoarthritis [Unknown]
  - Vitamin D deficiency [Unknown]

NARRATIVE: CASE EVENT DATE: 20180410
